FAERS Safety Report 6973751-2 (Version None)
Quarter: 2010Q3

REPORT INFORMATION
  Report Type: 
  Country: None (occurrence: None)
  Receive Date: 20100909
  Receipt Date: 20100827
  Transmission Date: 20110219
  Serious: Yes (Hospitalization)
  Sender: FDA-Public Use
  Company Number: A0796487A

PATIENT
  Age: 41 Year
  Sex: Female
  Weight: 88.2 kg

DRUGS (1)
  1. AVANDIA [Suspect]
     Dosage: 4MG TWICE PER DAY
     Route: 048
     Dates: start: 19990101, end: 20070301

REACTIONS (6)
  - ANGINA UNSTABLE [None]
  - ANGIOPLASTY [None]
  - CARDIAC FAILURE CONGESTIVE [None]
  - CARDIAC OPERATION [None]
  - CORONARY ARTERY DISEASE [None]
  - MYOCARDIAL INFARCTION [None]
